FAERS Safety Report 24969066 (Version 1)
Quarter: 2025Q1

REPORT INFORMATION
  Report Type: Report from Study
  Country: US (occurrence: US)
  Receive Date: 20250214
  Receipt Date: 20250214
  Transmission Date: 20250408
  Serious: Yes (Other)
  Sender: AMNEAL
  Company Number: US-AMNEAL PHARMACEUTICALS-2025-AMRX-00047

PATIENT
  Sex: Male
  Weight: 69.388 kg

DRUGS (7)
  1. CARBIDOPA\LEVODOPA [Suspect]
     Active Substance: CARBIDOPA\LEVODOPA
     Indication: Parkinson^s disease
     Dosage: 48.75/195MG, 2 CAPSULES, 4 /DAY
     Route: 048
  2. CARBIDOPA\LEVODOPA [Suspect]
     Active Substance: CARBIDOPA\LEVODOPA
     Route: 048
  3. VENLAFAXINE [Concomitant]
     Active Substance: VENLAFAXINE HYDROCHLORIDE
     Indication: Product used for unknown indication
     Dosage: 75 MILLIGRAM, 3 /DAY
     Route: 065
  4. AZILECT [RASAGILINE] [Concomitant]
     Indication: Product used for unknown indication
     Dosage: 1 MILLIGRAM, 1 /DAY
     Route: 065
  5. CLONAZEPAM [Concomitant]
     Active Substance: CLONAZEPAM
     Indication: Product used for unknown indication
     Route: 065
  6. GABAPENTIN [Concomitant]
     Active Substance: GABAPENTIN
     Indication: Product used for unknown indication
     Dosage: 300 MILLIGRAM, 3 /DAY (9AM, 2PM AND 8PM)
     Route: 065
  7. BOTOX [Concomitant]
     Active Substance: ONABOTULINUMTOXINA
     Indication: Dystonia
     Route: 065

REACTIONS (17)
  - Syncope [Unknown]
  - Incoherent [Unknown]
  - Malaise [Unknown]
  - Tremor [Unknown]
  - Gait disturbance [Unknown]
  - Hypokinesia [Unknown]
  - Dysphonia [Unknown]
  - Reduced facial expression [Unknown]
  - Tremor [Unknown]
  - Bradykinesia [Unknown]
  - Hypertonia [Unknown]
  - Foot deformity [Unknown]
  - Scoliosis [Unknown]
  - Movement disorder [Unknown]
  - Dizziness [Unknown]
  - Anxiety [Unknown]
  - Dyskinesia [Unknown]
